FAERS Safety Report 19585038 (Version 2)
Quarter: 2021Q3

REPORT INFORMATION
  Report Type: Report from Study
  Country: AU (occurrence: AU)
  Receive Date: 20210720
  Receipt Date: 20210809
  Transmission Date: 20211014
  Serious: Yes (Hospitalization)
  Sender: FDA-Public Use
  Company Number: AU-PFIZER INC-2021862356

PATIENT
  Age: 47 Year
  Sex: Male
  Weight: 99 kg

DRUGS (27)
  1. MOVICOL NEUTRAL [Concomitant]
     Active Substance: POLYETHYLENE GLYCOL 3350\POTASSIUM CHLORIDE\SODIUM BICARBONATE\SODIUM CHLORIDE
     Dosage: 2 DF, 2X/DAY
     Dates: start: 20210628
  2. ESOMEPRAZOLE. [Concomitant]
     Active Substance: ESOMEPRAZOLE MAGNESIUM
     Dosage: 20 MG
     Route: 048
     Dates: start: 20210623
  3. ESOMEPRAZOLE. [Concomitant]
     Active Substance: ESOMEPRAZOLE MAGNESIUM
     Dosage: 40 MG, 2X/DAY
     Route: 048
     Dates: start: 20210623
  4. THIAMINE. [Concomitant]
     Active Substance: THIAMINE
     Dosage: 100 MG, 1X/DAY
     Dates: start: 20210623
  5. COLOXYL WITH SENNA [DOCUSATE SODIUM;SENNOSIDE B] [Concomitant]
     Dosage: 2 DF, AS NEEDED
     Route: 048
     Dates: start: 20210702
  6. PARACETAMOL [Concomitant]
     Active Substance: ACETAMINOPHEN
     Dosage: 1 G, AS NEEDED
     Route: 048
     Dates: start: 20210624
  7. OXYCODONE [Concomitant]
     Active Substance: OXYCODONE
     Dosage: 5?10MG, AS NEEDED
     Route: 048
     Dates: start: 20210703, end: 20210705
  8. MS CONTIN [Concomitant]
     Active Substance: MORPHINE SULFATE
     Dosage: 5 MG
     Route: 048
     Dates: start: 20210622, end: 20210622
  9. MS CONTIN [Concomitant]
     Active Substance: MORPHINE SULFATE
     Dosage: 5 MG, 2X/DAY
     Route: 048
     Dates: start: 20210623
  10. MS CONTIN [Concomitant]
     Active Substance: MORPHINE SULFATE
     Dosage: 10 MG, 2X/DAY
     Route: 048
     Dates: start: 20210702
  11. ESOMEPRAZOLE. [Concomitant]
     Active Substance: ESOMEPRAZOLE MAGNESIUM
     Dosage: 40 MG, 2X/DAY
     Route: 048
     Dates: start: 20210702
  12. ENOXAPARIN [Concomitant]
     Active Substance: ENOXAPARIN
     Dosage: 40 MG, 1X/DAY
     Route: 058
     Dates: start: 20210622, end: 20210627
  13. MOVICOL NEUTRAL [Concomitant]
     Active Substance: POLYETHYLENE GLYCOL 3350\POTASSIUM CHLORIDE\SODIUM BICARBONATE\SODIUM CHLORIDE
     Dosage: 2 DF
     Route: 048
     Dates: start: 20210627, end: 20210627
  14. PALBOCICLIB [Suspect]
     Active Substance: PALBOCICLIB
     Indication: OESOPHAGEAL ADENOCARCINOMA
     Dosage: 125 MG, 20 DAYS ? CYCLE 1
     Route: 048
     Dates: start: 20210518, end: 20210706
  15. TEMAZEPAM. [Concomitant]
     Active Substance: TEMAZEPAM
     Dosage: 10 MG, DAILY
     Route: 048
     Dates: start: 20210622
  16. CYCLIZINE [Concomitant]
     Active Substance: CYCLIZINE
     Dosage: 25?50MG, AS NEEDED
     Route: 057
     Dates: start: 20210625, end: 20210625
  17. FLEET ENEMA [Concomitant]
     Active Substance: SODIUM PHOSPHATE, DIBASIC\SODIUM PHOSPHATE, MONOBASIC
     Dosage: 1 DF, AS NEEDED
     Route: 054
     Dates: start: 20210627, end: 20210627
  18. NORMAL SALINE [Concomitant]
     Active Substance: SODIUM CHLORIDE
     Dosage: 1 L, 4X/DAY
     Route: 042
     Dates: start: 20210622, end: 20210623
  19. MULTI VITAMIN + MINERAL [Concomitant]
     Active Substance: MINERALS\VITAMINS
     Indication: PROPHYLAXIS
     Dosage: 1 DF, 1X/DAY
     Route: 048
     Dates: start: 20210703
  20. LACTULOSE. [Concomitant]
     Active Substance: LACTULOSE
     Dosage: 20 ML, 3X/DAY
     Route: 048
     Dates: start: 20210628
  21. OXYCODONE [Concomitant]
     Active Substance: OXYCODONE
     Dosage: 5?15MG , AS NEEDED
     Route: 048
     Dates: start: 20210625
  22. AVELUMAB [Suspect]
     Active Substance: AVELUMAB
     Indication: OESOPHAGEAL ADENOCARCINOMA
     Dosage: 1020 MG, 15 DAYS ?CYCLE 1
     Route: 042
     Dates: start: 20210615
  23. COLOXYL WITH SENNA [DOCUSATE SODIUM;SENNOSIDE B] [Concomitant]
     Dosage: 2 DF, 2X/DAY
     Route: 048
     Dates: start: 20210622
  24. NORMAL SALINE [Concomitant]
     Active Substance: SODIUM CHLORIDE
     Dosage: 1 L, 1X/DAY
     Route: 042
     Dates: start: 20210623, end: 20210623
  25. TEMAZEPAM. [Concomitant]
     Active Substance: TEMAZEPAM
     Dosage: 10 MG, 1X/DAY
     Route: 048
     Dates: start: 20210702
  26. METOCLOPRAMIDE. [Concomitant]
     Active Substance: METOCLOPRAMIDE
     Dosage: 10 MG, 3X/DAY
     Route: 048
     Dates: start: 20210622
  27. PARACETAMOL [Concomitant]
     Active Substance: ACETAMINOPHEN
     Dosage: 1 G, AS NEEDED
     Route: 048
     Dates: start: 20210703

REACTIONS (1)
  - Constipation [Recovered/Resolved]

NARRATIVE: CASE EVENT DATE: 20210702
